FAERS Safety Report 25047123 (Version 1)
Quarter: 2025Q1

REPORT INFORMATION
  Report Type: Spontaneous
  Country: US (occurrence: US)
  Receive Date: 20250306
  Receipt Date: 20250306
  Transmission Date: 20250409
  Serious: No
  Sender: DR REDDYS
  Company Number: US-DRL-USA-USA/2025/03/003361

PATIENT
  Age: 57 Year
  Sex: Female

DRUGS (5)
  1. CYCLOSPORINE [Suspect]
     Active Substance: CYCLOSPORINE
     Indication: Psoriasis
  2. PREDNISONE [Concomitant]
     Active Substance: PREDNISONE
     Indication: Psoriasis
  3. SECUKINUMAB [Concomitant]
     Active Substance: SECUKINUMAB
     Indication: Psoriasis
  4. INFLIXIMAB [Concomitant]
     Active Substance: INFLIXIMAB
     Indication: Psoriasis
  5. IXEKIZUMAB [Concomitant]
     Active Substance: IXEKIZUMAB
     Indication: Psoriasis

REACTIONS (1)
  - Treatment failure [Unknown]
